FAERS Safety Report 5807041-8 (Version None)
Quarter: 2008Q3

REPORT INFORMATION
  Report Type: 
  Country: None (occurrence: None)
  Receive Date: 20080711
  Receipt Date: 20080610
  Transmission Date: 20090109
  Serious: No
  Sender: FDA-Public Use
  Company Number: US-BAYER-200817118NA

PATIENT
  Age: 44 Year
  Sex: Female
  Weight: 83 kg

DRUGS (2)
  1. MIRENA [Suspect]
     Indication: CONTRACEPTION
     Route: 015
     Dates: start: 20070115, end: 20080521
  2. DOXYCYCLINE HYDRATE [Concomitant]
     Indication: DRUG USE FOR UNKNOWN INDICATION
     Dosage: UNIT DOSE: 100 MG
     Route: 048
     Dates: start: 20070115, end: 20070118

REACTIONS (6)
  - ALOPECIA [None]
  - BLOOD TESTOSTERONE DECREASED [None]
  - COMPLICATION OF DEVICE INSERTION [None]
  - DEHYDROEPIANDROSTERONE DECREASED [None]
  - PROGESTERONE DECREASED [None]
  - VAGINAL HAEMORRHAGE [None]
